FAERS Safety Report 9753643 (Version 1)
Quarter: 2013Q4

REPORT INFORMATION
  Report Type: Spontaneous
  Country: IT (occurrence: None)
  Receive Date: 20131211
  Receipt Date: 20131211
  Transmission Date: 20140711
  Serious: Yes (Hospitalization)
  Sender: FDA-Public Use
  Company Number: DSM-2013-01140

PATIENT
  Age: 84 Year
  Sex: Female

DRUGS (7)
  1. OLPREZIDE (HYDROCHLOROTHIAZIDE, OLMESARTAN MEDOXOMIL) TABLET (HYDROCHLOROTHIAZIDE, OLMESARTAN MEDOXOMIL) (TABLET) [Suspect]
     Indication: HYPERTENSION
     Dosage: 20/25 MG (1 IN 1 D), ORAL?
     Route: 048
     Dates: start: 20120101, end: 20131103
  2. LASIX [Suspect]
     Indication: HYPERTENSION
     Dosage: 25 MG (25 MG, 1 IN 1 D), ORAL?
     Route: 048
     Dates: start: 20120101, end: 20131103
  3. OMEPRAZOLE (OMEPRAZOLE) (20 MILLIGRAM) (OMEPRAZOLE) [Concomitant]
  4. ENAPREN (ENAALAPRIL MALEATE) (20 MILLIGRAM) (ENALAPRIL MALEATE) [Concomitant]
  5. PLAVIX (CLOPIDOGREL SULFATE) (75 MILLIGRAM) (CLOPIDOGREL SULFATE) [Concomitant]
  6. PRISIUM (CLOBAZAM) (10 MILLIGRAM) (CLOBAZAM) [Concomitant]
  7. LEVOPRAID (SULPIRIDE) (50 MILLIGRAM) (SULPIRIDE) [Concomitant]

REACTIONS (5)
  - Presyncope [None]
  - Hypotension [None]
  - Heart rate decreased [None]
  - Hypokalaemia [None]
  - Hyponatraemia [None]
